FAERS Safety Report 18093214 (Version 2)
Quarter: 2020Q3

REPORT INFORMATION
  Report Type: Spontaneous
  Country: US (occurrence: US)
  Receive Date: 20200730
  Receipt Date: 20200731
  Transmission Date: 20201103
  Serious: Yes (Other)
  Sender: FDA-Public Use
  Company Number: US-GLAXOSMITHKLINE-US2020139407

PATIENT
  Age: 41 Year

DRUGS (1)
  1. ZANTAC [Suspect]
     Active Substance: RANITIDINE HYDROCHLORIDE
     Dosage: UNK

REACTIONS (4)
  - Bone cancer [Unknown]
  - Prostate cancer [Unknown]
  - Thymoma malignant [Unknown]
  - Neoplasm malignant [Unknown]
